FAERS Safety Report 19880680 (Version 2)
Quarter: 2021Q4

REPORT INFORMATION
  Report Type: Spontaneous
  Country: US (occurrence: US)
  Receive Date: 20210924
  Receipt Date: 20211108
  Transmission Date: 20220303
  Serious: Yes (Hospitalization, Other)
  Sender: FDA-Public Use
  Company Number: US-ELI_LILLY_AND_COMPANY-US202109008960

PATIENT
  Sex: Female
  Weight: 56.689 kg

DRUGS (4)
  1. TADALAFIL [Suspect]
     Active Substance: TADALAFIL
     Indication: Product used for unknown indication
     Dosage: UNK UNK, UNKNOWN
     Route: 065
  2. REMODULIN [Suspect]
     Active Substance: TREPROSTINIL
     Indication: Pulmonary arterial hypertension
     Dosage: 80 NG/KG/M IN, CONTINUOUS
     Route: 042
     Dates: start: 20210224
  3. REMODULIN [Suspect]
     Active Substance: TREPROSTINIL
     Dosage: 80 NG/KG/M IN, CONTINUOUS
     Route: 042
  4. AMBRISENTAN [Concomitant]
     Active Substance: AMBRISENTAN
     Indication: Product used for unknown indication

REACTIONS (5)
  - Vascular device infection [Unknown]
  - Thrombosis [Unknown]
  - COVID-19 [Unknown]
  - Pulmonary arterial hypertension [Unknown]
  - Product dose omission issue [Unknown]
